FAERS Safety Report 13914950 (Version 4)
Quarter: 2022Q1

REPORT INFORMATION
  Report Type: Report from Study
  Country: US (occurrence: US)
  Receive Date: 20170829
  Receipt Date: 20220301
  Transmission Date: 20220424
  Serious: Yes (Hospitalization, Other)
  Sender: FDA-Public Use
  Company Number: US-TEVA-794709USA

PATIENT
  Age: 52 Year
  Sex: Male
  Weight: 96.702 kg

DRUGS (16)
  1. CINQAIR [Suspect]
     Active Substance: RESLIZUMAB
     Indication: Asthma
     Route: 042
     Dates: start: 20170724
  2. LORAZEPAM [Concomitant]
     Active Substance: LORAZEPAM
     Dosage: 1 TABLET AS NEEDED EVERY 6 HOURS
     Route: 048
  3. KEPPRA [Concomitant]
     Active Substance: LEVETIRACETAM
     Indication: Seizure
     Route: 048
  4. VENTOLIN HFA [Concomitant]
     Active Substance: ALBUTEROL SULFATE
     Dosage: 108 (90 BASE) MCG/ACT;2 PUFFS AS NEEDED EVERY 4 HOURS
     Route: 055
  5. ZOFRAN [Concomitant]
     Active Substance: ONDANSETRON HYDROCHLORIDE
     Dosage: 8 MILLIGRAM DAILY;
     Route: 048
  6. SYNTHROID [Concomitant]
     Active Substance: LEVOTHYROXINE SODIUM
     Dosage: 75 MICROGRAM DAILY; 1 TABLET ON AN EMPTY STOMACH IN THE MORNING
     Route: 048
  7. ALLEGRA [Concomitant]
     Active Substance: FEXOFENADINE HYDROCHLORIDE
     Indication: Hypersensitivity
     Dosage: 1 EVERY 1 DAY AS NEEDED
  8. AZELASTINE [Concomitant]
     Active Substance: AZELASTINE
     Dosage: 2 GTT DAILY; 0.05 % SOLUTION; 1 DROP IN AFFECTED EYE
     Route: 047
  9. COMBIVENT [Concomitant]
     Active Substance: ALBUTEROL SULFATE\IPRATROPIUM BROMIDE
     Dosage: 4 DOSAGE FORMS DAILY; 20-100 MCG/ ACT
     Route: 055
  10. NASACORT [Concomitant]
     Active Substance: TRIAMCINOLONE ACETONIDE
     Dosage: 1 DOSAGE FORMS DAILY; 55 MCG/ ACT
     Route: 045
  11. DUONEB [Concomitant]
     Active Substance: ALBUTEROL SULFATE\IPRATROPIUM BROMIDE
  12. LAMICTAL [Concomitant]
     Active Substance: LAMOTRIGINE
     Dosage: 150 MILLIGRAM DAILY;
     Route: 048
  13. SYMBICORT [Concomitant]
     Active Substance: BUDESONIDE\FORMOTEROL FUMARATE DIHYDRATE
     Dosage: 4 DOSAGE FORMS DAILY; 160-4.5 MCG/ACT
     Route: 055
  14. PEPCID [Concomitant]
     Active Substance: FAMOTIDINE
     Dosage: 20 MILLIGRAM DAILY;
     Route: 048
  15. DULERA [Concomitant]
     Active Substance: FORMOTEROL FUMARATE DIHYDRATE\MOMETASONE FUROATE
     Dosage: 4 DOSAGE FORMS DAILY; 200-5 MCG/ ACT
     Route: 055
  16. PREDNISONE [Concomitant]
     Active Substance: PREDNISONE
     Dosage: TAPERING DOSE
     Route: 048

REACTIONS (20)
  - Anaphylactic reaction [Recovering/Resolving]
  - Pharyngeal swelling [Recovered/Resolved]
  - Chest pain [Unknown]
  - Heart rate increased [Recovered/Resolved]
  - Pulmonary congestion [Unknown]
  - Immunodeficiency [Unknown]
  - Rash [Unknown]
  - Dyspnoea [Recovering/Resolving]
  - Oropharyngeal pain [Recovered/Resolved]
  - Dysphonia [Unknown]
  - Wheezing [Unknown]
  - Flushing [Unknown]
  - Erythema [Unknown]
  - Dizziness [Unknown]
  - Dizziness [Unknown]
  - Pruritus [Recovering/Resolving]
  - Throat irritation [Recovered/Resolved]
  - Urticaria [Unknown]
  - Hyperhidrosis [Unknown]
  - Cough [Unknown]

NARRATIVE: CASE EVENT DATE: 20170724
